FAERS Safety Report 8270213-X (Version None)
Quarter: 2012Q2

REPORT INFORMATION
  Report Type: 
  Country: None (occurrence: None)
  Receive Date: 20120410
  Receipt Date: 20120331
  Transmission Date: 20120825
  Serious: Yes (Death, Other)
  Sender: FDA-Public Use
  Company Number: US-SANOFI-AVENTIS-2012SA022649

PATIENT
  Age: 76 Year
  Sex: Male

DRUGS (3)
  1. LANTUS [Suspect]
     Dosage: DOSE:10 UNIT(S)
     Route: 058
     Dates: start: 20111001
  2. SOLOSTAR [Suspect]
     Dates: start: 20111001
  3. LANTUS [Suspect]
     Dosage: DOSE:40 UNIT(S)
     Route: 058

REACTIONS (2)
  - MYOCARDIAL INFARCTION [None]
  - HYPOXIA [None]
